FAERS Safety Report 9008666 (Version 2)
Quarter: 2025Q2

REPORT INFORMATION
  Report Type: Spontaneous
  Country: NL (occurrence: NL)
  Receive Date: 20130111
  Receipt Date: 20250513
  Transmission Date: 20250717
  Serious: Yes (Hospitalization)
  Sender: PFIZER
  Company Number: NL-PFIZER INC-2013006757

PATIENT
  Age: 64 Year
  Sex: Female

DRUGS (13)
  1. CLINDAMYCIN HYDROCHLORIDE [Suspect]
     Active Substance: CLINDAMYCIN HYDROCHLORIDE
     Indication: Abscess jaw
  2. FUROSEMIDE [Concomitant]
     Active Substance: FUROSEMIDE
  3. ACETAMINOPHEN [Concomitant]
     Active Substance: ACETAMINOPHEN
  4. ATORVASTATIN [Concomitant]
     Active Substance: ATORVASTATIN
     Indication: Hypertension
  5. TRAMADOL [Concomitant]
     Active Substance: TRAMADOL
  6. OMEPRAZOLE [Concomitant]
     Active Substance: OMEPRAZOLE
  7. DILTIAZEM [Concomitant]
     Active Substance: DILTIAZEM
  8. PERINDOPRIL [Concomitant]
     Active Substance: PERINDOPRIL
  9. PREDNISOLONE [Concomitant]
     Active Substance: PREDNISOLONE
  10. LOPERAMIDE [Concomitant]
     Active Substance: LOPERAMIDE
  11. CALCIUM CARBONATE [Concomitant]
     Active Substance: CALCIUM CARBONATE
  12. ACENOCOUMAROL [Concomitant]
     Active Substance: ACENOCOUMAROL
  13. DICLOFENAC [Concomitant]
     Active Substance: DICLOFENAC

REACTIONS (5)
  - Acute generalised exanthematous pustulosis [Recovered/Resolved]
  - Haemodynamic instability [Recovered/Resolved]
  - Pyrexia [Recovered/Resolved]
  - International normalised ratio increased [Recovered/Resolved]
  - Ventricular tachycardia [Recovered/Resolved]
